FAERS Safety Report 6276998-6 (Version None)
Quarter: 2009Q3

REPORT INFORMATION
  Report Type: 
  Country: None (occurrence: None)
  Receive Date: 20090722
  Receipt Date: 20081114
  Transmission Date: 20100115
  Serious: No
  Sender: FDA-Public Use
  Company Number: US-BRISTOL-MYERS SQUIBB COMPANY-14408892

PATIENT

DRUGS (1)
  1. COUMADIN [Suspect]

REACTIONS (1)
  - DENTAL CLEANING [None]
